FAERS Safety Report 9707672 (Version 1)
Quarter: 2013Q4

REPORT INFORMATION
  Report Type: Spontaneous
  Country: DE (occurrence: DE)
  Receive Date: 20131125
  Receipt Date: 20131125
  Transmission Date: 20140711
  Serious: Yes (Hospitalization)
  Sender: FDA-Public Use
  Company Number: DE-UCBSA-103232

PATIENT
  Age: 71 Year
  Sex: Male

DRUGS (2)
  1. LEGANTO [Suspect]
     Dosage: UNKNOWN DOSE
     Dates: start: 2013, end: 20131108
  2. XARELTO [Concomitant]
     Dosage: UNKNOWN DOSE

REACTIONS (4)
  - Myocardial infarction [Unknown]
  - Contusion [Unknown]
  - Fall [Unknown]
  - Arthritis [Unknown]
